FAERS Safety Report 6096865-0 (Version None)
Quarter: 2009Q1

REPORT INFORMATION
  Report Type: 
  Country: None (occurrence: None)
  Receive Date: 20090225
  Receipt Date: 20090210
  Transmission Date: 20090719
  Serious: Yes (Hospitalization)
  Sender: FDA-Public Use
  Company Number: 2008BM000233

PATIENT
  Age: 10 Year
  Sex: Male
  Weight: 17.6 kg

DRUGS (4)
  1. NAGLAZYME [Suspect]
     Indication: MUCOPOLYSACCHARIDOSIS VI
     Dosage: 15 MG; QW; IVDRP
     Route: 041
     Dates: start: 20080918, end: 20081104
  2. NAGLAZYME [Suspect]
     Indication: MUCOPOLYSACCHARIDOSIS VI
     Dosage: 15 MG; QW; IVDRP
     Route: 041
     Dates: start: 20081101
  3. PARACETAMOL [Concomitant]
  4. DEXCHLORPHENIRANINE [Concomitant]

REACTIONS (4)
  - ASTHENIA [None]
  - EOSINOPHIL PERCENTAGE INCREASED [None]
  - PNEUMONIA [None]
  - RESPIRATORY TRACT INFECTION [None]
